FAERS Safety Report 6629103-8 (Version None)
Quarter: 2010Q1

REPORT INFORMATION
  Report Type: 
  Country: None (occurrence: None)
  Receive Date: 20100311
  Receipt Date: 20090817
  Transmission Date: 20100710
  Serious: No
  Sender: FDA-Public Use
  Company Number: US-BIOGENIDEC-2009BI025820

PATIENT
  Age: 24 Year
  Sex: Female

DRUGS (2)
  1. AVONEX [Suspect]
     Indication: MULTIPLE SCLEROSIS
     Route: 030
     Dates: start: 20090816
  2. IBUPROFEN [Concomitant]
     Indication: PREMEDICATION
     Route: 048

REACTIONS (4)
  - DIARRHOEA [None]
  - EYE HAEMORRHAGE [None]
  - INFLUENZA LIKE ILLNESS [None]
  - VOMITING [None]
